FAERS Safety Report 10279593 (Version 1)
Quarter: 2014Q3

REPORT INFORMATION
  Report Type: Spontaneous
  Country: US (occurrence: US)
  Receive Date: 20140707
  Receipt Date: 20140707
  Transmission Date: 20150326
  Serious: Yes (Other)
  Sender: FDA-Public Use
  Company Number: US-JNJFOC-20140619770

PATIENT
  Age: 70 Year
  Sex: Female

DRUGS (4)
  1. NICORETTE [Suspect]
     Active Substance: NICOTINE
     Indication: EX-TOBACCO USER
     Dosage: FOR 3 YEARS
     Route: 065
     Dates: start: 1999
  2. NICORETTE [Suspect]
     Active Substance: NICOTINE
     Indication: EX-TOBACCO USER
     Dosage: FOR 9 YEARS
     Route: 048
  3. NICORETTE [Suspect]
     Active Substance: NICOTINE
     Indication: EX-TOBACCO USER
     Route: 048
  4. NICORETTE [Suspect]
     Active Substance: NICOTINE
     Indication: EX-TOBACCO USER
     Route: 048

REACTIONS (5)
  - Nausea [Recovered/Resolved]
  - Drug dependence [Not Recovered/Not Resolved]
  - Therapeutic response changed [Not Recovered/Not Resolved]
  - Intentional product misuse [Unknown]
  - Tooth fracture [Recovered/Resolved]
